FAERS Safety Report 4864161-2 (Version None)
Quarter: 2005Q4

REPORT INFORMATION
  Report Type: 
  Country: None (occurrence: None)
  Receive Date: 20051222
  Receipt Date: 20051220
  Transmission Date: 20060501
  Serious: Yes (Hospitalization)
  Sender: FDA-Public Use
  Company Number: FR-GLAXOSMITHKLINE-B0404498A

PATIENT
  Age: 12 Year
  Sex: Male
  Weight: 39 kg

DRUGS (7)
  1. ZOVIRAX [Suspect]
     Route: 048
     Dates: start: 20051114, end: 20051117
  2. CELLCEPT [Suspect]
     Dosage: 750MG TWICE PER DAY
     Route: 048
     Dates: start: 20050615, end: 20051117
  3. DEPAKENE [Concomitant]
     Indication: CONVULSION
     Route: 048
     Dates: start: 20040915
  4. MOPRAL [Concomitant]
     Indication: GASTRIC DISORDER
     Dosage: 20MG PER DAY
     Route: 048
  5. ENALAPRIL MALEATE [Concomitant]
     Indication: ESSENTIAL HYPERTENSION
     Dosage: 12.5MG PER DAY
     Route: 048
     Dates: start: 20041010
  6. PLAQUENIL [Concomitant]
     Route: 048
     Dates: start: 20001215
  7. SOLU-MEDROL [Concomitant]
     Route: 040
     Dates: start: 20051114, end: 20051114

REACTIONS (4)
  - ALANINE AMINOTRANSFERASE INCREASED [None]
  - ASPARTATE AMINOTRANSFERASE INCREASED [None]
  - DRUG INTERACTION [None]
  - HEPATOCELLULAR DAMAGE [None]
